FAERS Safety Report 25742507 (Version 3)
Quarter: 2025Q4

REPORT INFORMATION
  Report Type: Spontaneous
  Country: US (occurrence: US)
  Receive Date: 20250829
  Receipt Date: 20251027
  Transmission Date: 20260117
  Serious: Yes (Other)
  Sender: PFIZER
  Company Number: US-PFIZER INC-202500169906

PATIENT
  Age: 6 Year
  Sex: Male

DRUGS (2)
  1. BENEFIX [Suspect]
     Active Substance: COAGULATION FACTOR IX RECOMBINANT HUMAN\ISOPROPYL ALCOHOL
     Indication: Haemorrhage
     Dosage: 1,500 UNITS ONCE DAILY PRN (+/- 10%)
     Route: 042
  2. BENEFIX [Suspect]
     Active Substance: COAGULATION FACTOR IX RECOMBINANT HUMAN\ISOPROPYL ALCOHOL
     Indication: Procedural haemorrhage
     Dosage: INFUSE 1,785 UNITS AS NEEDED
     Route: 042

REACTIONS (4)
  - Haemarthrosis [Unknown]
  - Epistaxis [Recovered/Resolved]
  - Haematoma [Unknown]
  - Head injury [Unknown]

NARRATIVE: CASE EVENT DATE: 20240301
